FAERS Safety Report 19192962 (Version 1)
Quarter: 2021Q2

REPORT INFORMATION
  Report Type: Spontaneous
  Country: US (occurrence: US)
  Receive Date: 20210428
  Receipt Date: 20210428
  Transmission Date: 20210717
  Serious: Yes (Other)
  Sender: FDA-Public Use
  Company Number: US-GW PHARMA-202104USGW02017

PATIENT

DRUGS (1)
  1. EPIDIOLEX [Suspect]
     Active Substance: CANNABIDIOL
     Indication: EPILEPSY
     Dosage: WEEK 1? 250 MG, WEEK 2? 500 MG, WEEK 3? 750 MG, WEEK 4? 1000 MG, WEEK 5 AND THEREAFTER? 1250 MG
     Route: 048

REACTIONS (1)
  - Seizure [Unknown]
